FAERS Safety Report 7369866-X (Version None)
Quarter: 2011Q1

REPORT INFORMATION
  Report Type: 
  Country: None (occurrence: None)
  Receive Date: 20110323
  Receipt Date: 20110321
  Transmission Date: 20110831
  Serious: Yes (Other)
  Sender: FDA-Public Use
  Company Number: US-GILEAD-2011-0037708

PATIENT
  Age: 89 Year
  Sex: Female

DRUGS (14)
  1. CALCIUM+D [Concomitant]
  2. FOSAMAX [Concomitant]
  3. METOPROLOL TARTRATE [Concomitant]
  4. PLAVIX [Concomitant]
  5. LISINOPRIL AND HYDROCHLOROTHIAZIDE [Concomitant]
  6. ACTONEL [Concomitant]
  7. FLAX SEED OIL [Concomitant]
  8. NITROGLYCERIN [Concomitant]
  9. LOVASTATIN [Concomitant]
  10. RANEXA [Suspect]
     Indication: PRODUCT USED FOR UNKNOWN INDICATION
     Route: 048
     Dates: start: 20100501
  11. ASPIRIN [Concomitant]
  12. ARICEPT [Concomitant]
  13. SERTRALINE HYDROCHLORIDE [Concomitant]
  14. VITAMIN D [Concomitant]

REACTIONS (1)
  - HALLUCINATION [None]
